FAERS Safety Report 15396287 (Version 1)
Quarter: 2018Q3

REPORT INFORMATION
  Report Type: Spontaneous
  Country: US (occurrence: US)
  Receive Date: 20180912
  Receipt Date: 20180912
  Transmission Date: 20181010
  Serious: Yes (Other)
  Sender: FDA-Public Use
  Company Number: None

PATIENT
  Age: 44 Year
  Sex: Female
  Weight: 55.79 kg

DRUGS (4)
  1. ZOLOFT [Concomitant]
     Active Substance: SERTRALINE HYDROCHLORIDE
  2. MULTIVITAMIN [Concomitant]
     Active Substance: VITAMINS
  3. SCOPOLAMINE PATCH [Suspect]
     Active Substance: SCOPOLAMINE
  4. LEVOTHYROXINE. [Concomitant]
     Active Substance: LEVOTHYROXINE

REACTIONS (6)
  - Nausea [None]
  - Blood pressure decreased [None]
  - Feeling hot [None]
  - Incoherent [None]
  - Loss of consciousness [None]
  - Visual impairment [None]

NARRATIVE: CASE EVENT DATE: 20180608
